FAERS Safety Report 20195689 (Version 1)
Quarter: 2021Q4

REPORT INFORMATION
  Report Type: Spontaneous
  Country: US (occurrence: US)
  Receive Date: 20211216
  Receipt Date: 20211216
  Transmission Date: 20220303
  Serious: No
  Sender: FDA-Public Use
  Company Number: US-CELGENE-USA-20211203826

PATIENT
  Age: 53 Year
  Sex: Female

DRUGS (5)
  1. THALOMID [Suspect]
     Active Substance: THALIDOMIDE
     Indication: Type 2 lepra reaction
     Dosage: 100 MILLIGRAM
     Route: 048
     Dates: start: 20190408
  2. THALOMID [Suspect]
     Active Substance: THALIDOMIDE
     Dosage: DOSE : 100 MG;     FREQ : DAILY AT BEDTIME
     Route: 048
     Dates: start: 20200110
  3. THALOMID [Suspect]
     Active Substance: THALIDOMIDE
     Dosage: DOSE : 100 MG;     FREQ : DAILY AT BEDTIME
     Route: 048
     Dates: start: 20200713
  4. THALOMID [Suspect]
     Active Substance: THALIDOMIDE
     Dosage: DOSE : 100 MG;     FREQ : DAILY AT BEDTIME
     Route: 048
     Dates: start: 20200806
  5. THALOMID [Suspect]
     Active Substance: THALIDOMIDE
     Dosage: DOSE : 100 MG;     FREQ : DAILY AT BEDTIME
     Route: 048
     Dates: start: 202109

REACTIONS (2)
  - Feeling abnormal [Unknown]
  - Movement disorder [Unknown]

NARRATIVE: CASE EVENT DATE: 20211210
